FAERS Safety Report 4332162-9 (Version None)
Quarter: 2004Q1

REPORT INFORMATION
  Report Type: 
  Country: None (occurrence: None)
  Receive Date: 20040329
  Receipt Date: 20040318
  Transmission Date: 20041129
  Serious: Yes (Other)
  Sender: FDA-Public Use
  Company Number: 2004018987

PATIENT
  Age: 51 Year
  Sex: Female
  Weight: 59.8748 kg

DRUGS (8)
  1. GLUCOTROL XL [Suspect]
     Indication: DIABETES MELLITUS
     Dosage: BID , ORAL
     Route: 048
  2. BECOSYM FORTE (PYRIDOXINE HYDROCHLORIDE, THIAMINE HYDROCHLORIDE, RIBOF [Concomitant]
  3. CYANOCOBALAMIN [Concomitant]
  4. EVENING PRIMROSE OIL [Concomitant]
  5. ASCORBIC ACID [Concomitant]
  6. GARLIC [Concomitant]
  7. MULTIVITAMIN [Concomitant]
  8. CRATAEGUS [Concomitant]

REACTIONS (8)
  - ACCIDENT AT WORK [None]
  - ANOREXIA [None]
  - BLOOD CHOLESTEROL INCREASED [None]
  - DECREASED ACTIVITY [None]
  - EXERCISE LACK OF [None]
  - FOOT FRACTURE [None]
  - STRESS SYMPTOMS [None]
  - WEIGHT DECREASED [None]
